FAERS Safety Report 10377668 (Version 3)
Quarter: 2014Q3

REPORT INFORMATION
  Report Type: Spontaneous
  Country: JP (occurrence: JP)
  Receive Date: 20140812
  Receipt Date: 20140910
  Transmission Date: 20150326
  Serious: Yes (Death, Other)
  Sender: FDA-Public Use
  Company Number: PHHY2014JP085636

PATIENT
  Age: 86 Year
  Sex: Male

DRUGS (4)
  1. GLIVEC [Suspect]
     Active Substance: IMATINIB MESYLATE
     Dosage: 300 MG, DAILY
     Route: 048
     Dates: start: 2011, end: 201306
  2. GLIVEC [Suspect]
     Active Substance: IMATINIB MESYLATE
     Dosage: 200 MG, DAILY
     Route: 048
     Dates: start: 201307
  3. GLIVEC [Suspect]
     Active Substance: IMATINIB MESYLATE
     Dosage: 300 MG, EVERY SECOND DAY
     Route: 048
     Dates: start: 201401, end: 20140315
  4. GLIVEC [Suspect]
     Active Substance: IMATINIB MESYLATE
     Indication: GASTROINTESTINAL STROMAL TUMOUR
     Dosage: 200 MG, DAILY
     Route: 048
     Dates: end: 201006

REACTIONS (8)
  - Therapeutic response decreased [Unknown]
  - Cough [Unknown]
  - Gastrointestinal stromal tumour [Fatal]
  - Platelet count decreased [Unknown]
  - Sputum increased [Recovered/Resolved]
  - Malignant neoplasm progression [Fatal]
  - Tumour haemorrhage [Recovering/Resolving]
  - Thrombocytopenia [Unknown]

NARRATIVE: CASE EVENT DATE: 200908
